FAERS Safety Report 6671236-4 (Version None)
Quarter: 2010Q2

REPORT INFORMATION
  Report Type: 
  Country: None (occurrence: None)
  Receive Date: 20100407
  Receipt Date: 20100325
  Transmission Date: 20101027
  Serious: Yes (Hospitalization)
  Sender: FDA-Public Use
  Company Number: US-ROCHE-687951

PATIENT
  Sex: Female
  Weight: 70.8 kg

DRUGS (19)
  1. BEVACIZUMAB [Suspect]
     Indication: BREAST CANCER
     Route: 042
     Dates: start: 20090424, end: 20100126
  2. PACLITAXEL [Suspect]
     Indication: BREAST CANCER
     Dosage: FREQUENCY REPORTED: EVERY 3 OF 4 WEEKS
     Route: 042
     Dates: start: 20090424, end: 20100126
  3. AMBIEN [Concomitant]
     Dates: start: 20000101
  4. CALCIUM [Concomitant]
     Dates: start: 20060101
  5. DILTIAZEM HCL [Concomitant]
     Dates: start: 20070101
  6. FISH OIL [Concomitant]
     Dates: start: 20090508
  7. HYZAAR [Concomitant]
     Dates: start: 20070909
  8. LEVOXYL [Concomitant]
     Dates: start: 20000101
  9. SENNA [Concomitant]
     Dates: start: 20090424
  10. VITAMINE D [Concomitant]
     Dates: start: 20060101
  11. BIMATOPROST [Concomitant]
     Dates: start: 20060101
  12. TIMOLOL [Concomitant]
     Dates: start: 20080101
  13. CHONDROITIN [Concomitant]
     Dates: start: 20000101
  14. FAMOTIDINE [Concomitant]
     Dates: start: 20090424, end: 20100126
  15. DIPHENHYDRAMINE HYDROCHLORIDE [Concomitant]
     Dates: start: 20090424, end: 20100126
  16. DEXAMETHASONE [Concomitant]
     Dates: start: 20090424, end: 20100126
  17. NORMAL SALINE [Concomitant]
     Dates: start: 20090424, end: 20100126
  18. LORAZEPAM [Concomitant]
     Dates: start: 20090424
  19. OMEPRAZOLE [Concomitant]
     Dates: start: 20090424

REACTIONS (1)
  - PANCREATITIS [None]
